FAERS Safety Report 4689766-3 (Version None)
Quarter: 2005Q2

REPORT INFORMATION
  Report Type: 
  Country: None (occurrence: None)
  Receive Date: 20050608
  Receipt Date: 20040624
  Transmission Date: 20051028
  Serious: Yes (Other)
  Sender: FDA-Public Use
  Company Number: 372219

PATIENT
  Age: 14 Year
  Sex: Male
  Weight: 57.6 kg

DRUGS (1)
  1. ACCUTANE [Suspect]
     Indication: ACNE CYSTIC
     Dosage: 40 MG DAILY ORAL
     Route: 048
     Dates: start: 20040204, end: 20040515

REACTIONS (2)
  - GRAND MAL CONVULSION [None]
  - HEADACHE [None]
